FAERS Safety Report 9821862 (Version 3)
Quarter: 2018Q1

REPORT INFORMATION
  Report Type: Spontaneous
  Country: CA (occurrence: CA)
  Receive Date: 20140116
  Receipt Date: 20180213
  Transmission Date: 20180509
  Serious: Yes (Life-Threatening, Other)
  Sender: FDA-Public Use
  Company Number: CA-009507513-1401CAN005358

PATIENT
  Age: 36 Year
  Sex: Female
  Weight: 68.27 kg

DRUGS (2)
  1. NASONEX [Suspect]
     Active Substance: MOMETASONE FUROATE
     Indication: NASAL CONGESTION
     Dosage: 4 DF, ONCE (2 SPRAYS PER NOSTRIL)
     Route: 045
     Dates: start: 20121224, end: 20121224
  2. NASONEX [Suspect]
     Active Substance: MOMETASONE FUROATE
     Indication: NASOPHARYNGITIS

REACTIONS (15)
  - Chest discomfort [Recovering/Resolving]
  - Chest pain [Recovering/Resolving]
  - Tremor [Recovering/Resolving]
  - Dyspnoea [Recovering/Resolving]
  - Pneumonia [Recovering/Resolving]
  - Heart rate increased [Recovering/Resolving]
  - Heart rate irregular [Recovering/Resolving]
  - Hypokinesia [Recovering/Resolving]
  - Nerve injury [Recovering/Resolving]
  - Seizure [Recovering/Resolving]
  - Guillain-Barre syndrome [Recovering/Resolving]
  - Rales [Recovering/Resolving]
  - Chills [Recovering/Resolving]
  - Rash [Recovering/Resolving]
  - Asthenia [Recovering/Resolving]

NARRATIVE: CASE EVENT DATE: 20121224
